FAERS Safety Report 8963138 (Version 1)
Quarter: 2012Q4

REPORT INFORMATION
  Report Type: 
  Country: US (occurrence: US)
  Receive Date: 20121213
  Receipt Date: 20121213
  Transmission Date: 20130627
  Serious: No
  Sender: FDA-Public Use
  Company Number: US-VERTEX PHARMACEUTICALS INC.-2012-025626

PATIENT
  Age: 62 Year
  Sex: Female
  Weight: 66 kg

DRUGS (8)
  1. VX-950 (TELAPREVIR) [Suspect]
     Indication: HEPATITIS C
     Dosage: 750 mg, tid
     Route: 048
  2. RIBAVIRIN [Concomitant]
     Indication: HEPATITIS C
     Dosage: 200 mg, UNK
     Route: 048
  3. PEGASYS PFS [Concomitant]
     Indication: HEPATITIS C
     Dosage: UNK
     Route: 058
  4. DIOVAN HCT [Concomitant]
     Dosage: 320-12.5
     Route: 048
  5. METOPROLOL /00376902/ [Concomitant]
     Dosage: 50 mg, UNK
     Route: 048
  6. PANTOPRAZOLE [Concomitant]
     Dosage: 40 mg, UNK
     Route: 048
  7. VITAMIN B 12 [Concomitant]
     Dosage: 500 ?g, UNK
     Route: 048
  8. ASAFLOW [Concomitant]
     Dosage: LOW DOSE
     Route: 048

REACTIONS (9)
  - Influenza like illness [Unknown]
  - Faeces pale [Unknown]
  - Malaise [Unknown]
  - Rash [Unknown]
  - Diarrhoea [Unknown]
  - Pruritus [Unknown]
  - Anorectal discomfort [Unknown]
  - Nausea [Unknown]
  - Vomiting [Unknown]
